FAERS Safety Report 25229985 (Version 1)
Quarter: 2025Q2

REPORT INFORMATION
  Report Type: Spontaneous
  Country: US (occurrence: None)
  Receive Date: 20250422
  Receipt Date: 20250422
  Transmission Date: 20250717
  Serious: Yes (Death)
  Sender: FDA-CTU
  Company Number: None

PATIENT
  Age: 33 Year

DRUGS (4)
  1. BIKTARVY [Suspect]
     Active Substance: BICTEGRAVIR SODIUM\EMTRICITABINE\TENOFOVIR ALAFENAMIDE FUMARATE
     Indication: HIV infection
     Dosage: FREQUENCY : DAILY;?
     Route: 048
     Dates: start: 20250326, end: 20250422
  2. DULOXETINE [Concomitant]
     Active Substance: DULOXETINE
     Dates: start: 20230518, end: 20250422
  3. GABAPENTIN [Concomitant]
     Active Substance: GABAPENTIN
     Dates: start: 20230428, end: 20250422
  4. ACETAMINOPHEN\OXYCODONE HYDROCHLORIDE [Concomitant]
     Active Substance: ACETAMINOPHEN\OXYCODONE HYDROCHLORIDE
     Dates: start: 20230428, end: 20250422

REACTIONS (1)
  - Death [None]

NARRATIVE: CASE EVENT DATE: 20250422
